FAERS Safety Report 24434820 (Version 4)
Quarter: 2024Q4

REPORT INFORMATION
  Report Type: Spontaneous
  Country: IT (occurrence: IT)
  Receive Date: 20241014
  Receipt Date: 20241031
  Transmission Date: 20250114
  Serious: Yes (Life-Threatening)
  Sender: BOEHRINGER INGELHEIM
  Company Number: None

PATIENT
  Age: 86 Year
  Sex: Female
  Weight: 70 kg

DRUGS (8)
  1. DABIGATRAN ETEXILATE MESYLATE [Suspect]
     Active Substance: DABIGATRAN ETEXILATE MESYLATE
     Indication: Thrombosis prophylaxis
     Route: 048
     Dates: start: 2024, end: 20241004
  2. FUROSEMIDE SODIUM [Concomitant]
     Active Substance: FUROSEMIDE SODIUM
     Indication: Hypertension
     Route: 048
     Dates: start: 2024, end: 20241004
  3. SPIRONOLACTONE [Concomitant]
     Active Substance: SPIRONOLACTONE
     Indication: Hypertension
     Route: 048
     Dates: start: 2024, end: 20241004
  4. VALSARTAN [Concomitant]
     Active Substance: VALSARTAN
     Indication: Hypertension
     Route: 048
     Dates: start: 2024, end: 20241004
  5. PARACETAMOLO + OSSICODONE [Concomitant]
     Indication: Tenderness
     Dosage: 10 MG+325 MG (AS REPORTED)
     Route: 048
     Dates: start: 2024, end: 20241004
  6. SERTRALINE [Concomitant]
     Active Substance: SERTRALINE HYDROCHLORIDE
     Indication: Depression
     Route: 048
     Dates: start: 2024, end: 20241004
  7. BECLOMETASONE + FORMOTEROLO [Concomitant]
     Indication: Chronic obstructive pulmonary disease
     Dosage: 160/45 MG
     Route: 055
     Dates: start: 2024, end: 20241004
  8. UMECLIDINIO [Concomitant]
     Indication: Chronic obstructive pulmonary disease
     Route: 055
     Dates: start: 2024, end: 20241004

REACTIONS (3)
  - Shock haemorrhagic [Recovered/Resolved]
  - Prothrombin time prolonged [Recovering/Resolving]
  - Blood thromboplastin increased [Recovering/Resolving]

NARRATIVE: CASE EVENT DATE: 20241004
